FAERS Safety Report 18864866 (Version 10)
Quarter: 2021Q3

REPORT INFORMATION
  Report Type: Report from Study
  Country: GB (occurrence: GB)
  Receive Date: 20210208
  Receipt Date: 20210819
  Transmission Date: 20211014
  Serious: Yes (Hospitalization, Other)
  Sender: FDA-Public Use
  Company Number: GB-MYLANLABS-2021M1007504

PATIENT
  Age: 43 Year
  Sex: Female

DRUGS (42)
  1. DIFFLAM ORAL RINSE (BENZYDAMINE) [Suspect]
     Active Substance: BENZYDAMINE
     Indication: MUCOSAL INFLAMMATION
     Dosage: LIQUID MOUTHWASH 15 ML/CM3
     Route: 048
  2. DOCETAXEL. [Suspect]
     Active Substance: DOCETAXEL
     Dosage: 130 MILLIGRAM, Q3W (130 MG, Q3W)
     Route: 042
     Dates: start: 20150616, end: 20150616
  3. DOCETAXEL. [Suspect]
     Active Substance: DOCETAXEL
     Dosage: 130 MILLIGRAM, Q3W (130 MG, Q3W)
     Route: 042
     Dates: start: 20150616, end: 20150709
  4. PACLITAXEL. [Suspect]
     Active Substance: PACLITAXEL
     Dosage: 567 MILLIGRAM, TOTAL
     Route: 042
     Dates: start: 20150616, end: 20150616
  5. PACLITAXEL. [Suspect]
     Active Substance: PACLITAXEL
     Dosage: 450 MILLIGRAM, Q3W
     Route: 042
     Dates: start: 20150820, end: 20150820
  6. PACLITAXEL. [Suspect]
     Active Substance: PACLITAXEL
     Dosage: 840 MILLIGRAM, TOTAL (LOADING DOSE)
     Route: 042
     Dates: start: 20150615, end: 20150615
  7. METFORMIN [Concomitant]
     Active Substance: METFORMIN HYDROCHLORIDE
     Dosage: 2 GRAM, QD
     Route: 048
  8. DOMPERIDONE [Concomitant]
     Active Substance: DOMPERIDONE
     Dosage: 10 MILLIGRAM, QD (30 MG,QD)
     Route: 048
     Dates: start: 20190709
  9. PACLITAXEL. [Suspect]
     Active Substance: PACLITAXEL
     Dosage: 340 MILLIGRAM, Q3W EVERY 3 WEEKS LOADING DOSE
     Route: 042
     Dates: start: 20151022, end: 20151022
  10. TRASTUZUMAB. [Suspect]
     Active Substance: TRASTUZUMAB
     Dosage: 420 MILLIGRAM, 3XW MAINTAINANCE DOSE
     Route: 042
     Dates: start: 20150709
  11. METFORMIN [Concomitant]
     Active Substance: METFORMIN HYDROCHLORIDE
     Indication: DIABETES MELLITUS
     Dosage: 1 GRAM, QD (1 G,QD)
     Route: 048
  12. HYDROCORTISONE. [Concomitant]
     Active Substance: HYDROCORTISONE
     Indication: PRODUCT USED FOR UNKNOWN INDICATION
     Dosage: 100 MILLIGRAM (100 MG,UNK)
     Route: 042
     Dates: start: 20150709, end: 20150709
  13. CO?AMOXICLAV                       /00756801/ [Concomitant]
     Active Substance: AMOXICILLIN\CLAVULANIC ACID
     Dosage: UNK, COUGH WITH YELLOW SPUTUM
     Dates: start: 20180710, end: 20180717
  14. PACLITAXEL. [Suspect]
     Active Substance: PACLITAXEL
     Indication: BREAST CANCER METASTATIC
     Dosage: 340 MILLIGRAM, Q3W (340 MG,Q3W)
     Route: 042
     Dates: start: 20151022, end: 20151022
  15. PACLITAXEL. [Suspect]
     Active Substance: PACLITAXEL
     Dosage: 450 MILLIGRAM, Q3W (450 MG,Q3W )
     Route: 042
     Dates: start: 20150730, end: 20150730
  16. PACLITAXEL. [Suspect]
     Active Substance: PACLITAXEL
     Dosage: 420 MILLIGRAM, Q3W, MAINTENANCE DOSE
     Route: 042
     Dates: start: 20150709, end: 20150709
  17. PACLITAXEL. [Suspect]
     Active Substance: PACLITAXEL
     Dosage: 450 MILLIGRAM, Q3W (450 MG,Q3W)
     Route: 042
     Dates: start: 20150616, end: 20150616
  18. DOMPERIDONE [Concomitant]
     Active Substance: DOMPERIDONE
     Dosage: 30 MILLIGRAM, QD
     Route: 048
     Dates: start: 20180709
  19. DOCETAXEL. [Suspect]
     Active Substance: DOCETAXEL
     Indication: BREAST CANCER METASTATIC
     Dosage: 130 MILLIGRAM, Q3W (130 MG, Q3W)
     Route: 042
     Dates: start: 20150709, end: 20150709
  20. DOCETAXEL. [Suspect]
     Active Substance: DOCETAXEL
     Dosage: 260 MILLIGRAM, Q3W
     Route: 042
     Dates: start: 20150616
  21. TRAMADOL. [Concomitant]
     Active Substance: TRAMADOL
     Dosage: 50 MILLIGRAM, QD  (50 MG,QD)
     Route: 048
  22. PACLITAXEL. [Suspect]
     Active Substance: PACLITAXEL
     Dosage: 340 MILLIGRAM, Q3W (340 MG,Q3W)
     Route: 042
     Dates: start: 20150910, end: 20150910
  23. HERCEPTIN [Suspect]
     Active Substance: TRASTUZUMAB
     Indication: BREAST CANCER METASTATIC
     Dosage: 420 MILLIGRAM, Q3W (420 MG, Q3W)
     Route: 042
     Dates: start: 20150709, end: 20150709
  24. PACLITAXEL. [Suspect]
     Active Substance: PACLITAXEL
     Dosage: 340 MILLIGRAM, Q3W EVERY 3 WEEKS LOADING DOSE
     Route: 042
     Dates: start: 20150820, end: 20150820
  25. PACLITAXEL. [Suspect]
     Active Substance: PACLITAXEL
     Dosage: 340 MILLIGRAM, Q3W
     Route: 042
     Dates: start: 20150730
  26. PACLITAXEL. [Suspect]
     Active Substance: PACLITAXEL
     Dosage: 450 MILLIGRAM, Q3W (450 MG,Q3W)
     Route: 042
     Dates: start: 20150820, end: 20150820
  27. TRASTUZUMAB. [Suspect]
     Active Substance: TRASTUZUMAB
     Indication: BREAST CANCER METASTATIC
     Dosage: 567 MILLIGRAM, QD LOADING DOSE
     Route: 041
     Dates: start: 20150616, end: 20150616
  28. COCODAMOL [Concomitant]
     Active Substance: ACETAMINOPHEN\CODEINE PHOSPHATE
     Dosage: 2000 MILLIGRAM, QD
     Route: 048
  29. PACLITAXEL. [Suspect]
     Active Substance: PACLITAXEL
     Dosage: 450 MILLIGRAM, Q3W (450 MG,Q3W)
     Route: 042
     Dates: start: 20150730, end: 20150730
  30. PACLITAXEL. [Suspect]
     Active Substance: PACLITAXEL
     Dosage: 1350 MILLIGRAM, Q3W, LOADING DOSE
     Route: 042
     Dates: start: 20150730
  31. PERTUZUMAB. [Suspect]
     Active Substance: PERTUZUMAB
     Indication: BREAST CANCER METASTATIC
     Dosage: 840 MG, SINGLE (LOADING DOSE)
     Route: 042
     Dates: start: 20150615, end: 20150615
  32. PERTUZUMAB. [Suspect]
     Active Substance: PERTUZUMAB
     Dosage: 567 MILLIGRAM, Q3W
     Route: 041
     Dates: start: 20150616
  33. PERTUZUMAB. [Suspect]
     Active Substance: PERTUZUMAB
     Dosage: 420 MILLIGRAM, Q3W (MAINTAINACE DOSE)
     Route: 042
     Dates: start: 20150709
  34. CHLORPHENAMINE [Concomitant]
     Active Substance: CHLORPHENIRAMINE MALEATE
     Indication: PRODUCT USED FOR UNKNOWN INDICATION
     Dosage: 10 MILLIGRAM
     Route: 042
     Dates: start: 20150709, end: 20150709
  35. DOMPERIDONE [Concomitant]
     Active Substance: DOMPERIDONE
     Indication: PRODUCT USED FOR UNKNOWN INDICATION
     Dosage: 10 MILLIGRAM, QD (30 MG,QD)
     Route: 048
     Dates: start: 20150709
  36. COCODAMOL [Concomitant]
     Active Substance: ACETAMINOPHEN\CODEINE PHOSPHATE
     Indication: PRODUCT USED FOR UNKNOWN INDICATION
     Dosage: 500 MILLIGRAM, QD (500 MG, QD)
     Route: 048
  37. CO?AMOXICLAV                       /00756801/ [Concomitant]
     Active Substance: AMOXICILLIN\CLAVULANIC ACID
     Indication: COUGH
     Dosage: COUGH WITH YELLOW SPUTUM
     Route: 048
     Dates: start: 20180110, end: 20180117
  38. DOCETAXEL. [Suspect]
     Active Substance: DOCETAXEL
     Dosage: 260 MILLIGRAM, Q3W
     Route: 042
     Dates: start: 20150616, end: 20150709
  39. PACLITAXEL. [Suspect]
     Active Substance: PACLITAXEL
     Dosage: 450 MILLIGRAM, Q3W (450 MG,Q3W)
     Route: 042
     Dates: start: 20150709, end: 20150709
  40. LOPERAMIDE [Suspect]
     Active Substance: LOPERAMIDE
     Indication: DIARRHOEA
     Dosage: 2 MILLIGRAM, PRN (AS NEEDED )
     Route: 048
  41. HERCEPTIN [Suspect]
     Active Substance: TRASTUZUMAB
     Dosage: 567 MILLIGRAM, QD (567 MG, QD)
     Route: 042
     Dates: start: 20150616
  42. TRAMADOL. [Concomitant]
     Active Substance: TRAMADOL
     Indication: PAIN
     Dosage: 50 MILLIGRAM, QD  (50 MG,QD)
     Route: 048

REACTIONS (7)
  - Febrile neutropenia [Recovered/Resolved]
  - Swelling [Not Recovered/Not Resolved]
  - Fatigue [Recovered/Resolved]
  - Chest pain [Recovered/Resolved]
  - Diarrhoea [Recovered/Resolved]
  - Neuropathy peripheral [Recovered/Resolved]
  - Mucosal inflammation [Recovered/Resolved]

NARRATIVE: CASE EVENT DATE: 20150908
